FAERS Safety Report 5015797-X (Version None)
Quarter: 2006Q2

REPORT INFORMATION
  Report Type: 
  Country: None (occurrence: None)
  Receive Date: 20060525
  Receipt Date: 20060518
  Transmission Date: 20061013
  Serious: Yes (Death)
  Sender: FDA-Public Use
  Company Number: GBR-2006-0002298

PATIENT
  Sex: Male

DRUGS (3)
  1. BUPRENORPHINE HCL [Suspect]
     Indication: DRUG USE FOR UNKNOWN INDICATION
     Dosage: TRANSDERMAL
     Route: 062
  2. MORPHINE SULFATE [Suspect]
     Indication: DRUG USE FOR UNKNOWN INDICATION
  3. CODEINE (CODEINE) [Suspect]
     Indication: DRUG USE FOR UNKNOWN INDICATION

REACTIONS (9)
  - BLADDER DISORDER [None]
  - BRAIN OEDEMA [None]
  - CONSTIPATION [None]
  - LOWER RESPIRATORY TRACT INFLAMMATION [None]
  - MULTIPLE DRUG OVERDOSE INTENTIONAL [None]
  - PNEUMONIA ASPIRATION [None]
  - PULMONARY OEDEMA [None]
  - RESPIRATORY PARALYSIS [None]
  - URINARY RETENTION [None]
